FAERS Safety Report 9608836 (Version 3)
Quarter: 2013Q4

REPORT INFORMATION
  Report Type: Spontaneous
  Country: JP (occurrence: JP)
  Receive Date: 20131009
  Receipt Date: 20131108
  Transmission Date: 20140711
  Serious: Yes (Death, Disabling, Other)
  Sender: FDA-Public Use
  Company Number: JP-OTSUKA-JP-2013-13171

PATIENT
  Age: 74 Year
  Sex: Male

DRUGS (11)
  1. SAMSCA [Suspect]
     Indication: CARDIAC FAILURE
     Dosage: 7.5 MG MILLIGRAM(S), DAILY DOSE
     Route: 048
     Dates: start: 20130110, end: 20130111
  2. SAMSCA [Suspect]
     Dosage: 3.75 MG MILLIGRAM(S), DAILY DOSE
     Route: 048
     Dates: start: 20130112, end: 201303
  3. SAMSCA [Suspect]
     Dosage: 15 MG MILLIGRAM(S), DAILY DOSE
     Route: 048
     Dates: start: 201303, end: 20130717
  4. SAMSCA [Suspect]
     Dosage: 7.5 MG MILLIGRAM(S), QAM
     Route: 048
     Dates: start: 20130807, end: 20130808
  5. SPIRONOLACTONE [Concomitant]
     Indication: CARDIAC FAILURE
     Dosage: 25 MG MILLIGRAM(S), QD
     Route: 048
     Dates: start: 2012
  6. DIART [Concomitant]
     Indication: CARDIAC FAILURE
     Dosage: 60 MG MILLIGRAM(S), QD
     Route: 048
     Dates: start: 2012
  7. TANATRIL [Concomitant]
     Indication: CARDIAC FAILURE
     Dosage: 2.5 MG MILLIGRAM(S), QD
     Route: 048
     Dates: start: 2012
  8. WARFARIN K [Concomitant]
     Indication: ATRIAL FIBRILLATION
     Dosage: 1 MG MILLIGRAM(S), QD
     Route: 048
     Dates: start: 2012
  9. SILECE [Concomitant]
     Indication: INSOMNIA
     Dosage: 1 MG MILLIGRAM(S), QD
     Route: 048
     Dates: start: 20130730
  10. LASIX [Concomitant]
     Indication: CARDIAC FAILURE
     Dosage: 20 MG MILLIGRAM(S), QD
     Route: 042
     Dates: start: 20130806, end: 20130807
  11. TETRAMIDE [Concomitant]
     Indication: INSOMNIA
     Dosage: 20 MG MILLIGRAM(S), QD
     Route: 048
     Dates: start: 20130806

REACTIONS (6)
  - Cardiac failure acute [Fatal]
  - Altered state of consciousness [Not Recovered/Not Resolved]
  - Disseminated intravascular coagulation [Unknown]
  - Pneumonia aspiration [Unknown]
  - Hypernatraemia [Not Recovered/Not Resolved]
  - Blood pressure decreased [Recovering/Resolving]
